FAERS Safety Report 10388196 (Version 1)
Quarter: 2014Q3

REPORT INFORMATION
  Report Type: Spontaneous
  Country: US (occurrence: US)
  Receive Date: 20140815
  Receipt Date: 20140815
  Transmission Date: 20150326
  Serious: Yes (Other)
  Sender: FDA-Public Use
  Company Number: US-GLAXOSMITHKLINE-A1085061A

PATIENT
  Age: 41 Year
  Sex: Female
  Weight: 108.6 kg

DRUGS (7)
  1. ALBUTEROL. [Concomitant]
     Active Substance: ALBUTEROL
  2. PROAIR HFA [Concomitant]
     Active Substance: ALBUTEROL SULFATE
  3. ADVAIR HFA [Suspect]
     Active Substance: FLUTICASONE PROPIONATE\SALMETEROL XINAFOATE
     Indication: ASTHMA
     Dosage: 1PUFF TWICE PER DAY
     Route: 055
     Dates: start: 20120919
  4. LORATADINE. [Concomitant]
     Active Substance: LORATADINE
  5. FLUCONAZOLE. [Concomitant]
     Active Substance: FLUCONAZOLE
  6. PREDNISONE. [Concomitant]
     Active Substance: PREDNISONE
  7. LISINOPRIL. [Concomitant]
     Active Substance: LISINOPRIL

REACTIONS (6)
  - Wheezing [Unknown]
  - Dyspnoea [Unknown]
  - Respiratory distress [Unknown]
  - Weight increased [Unknown]
  - Drug dose omission [Unknown]
  - Asthma [Unknown]
